FAERS Safety Report 8101058-9 (Version None)
Quarter: 2012Q1

REPORT INFORMATION
  Report Type: 
  Country: None (occurrence: None)
  Receive Date: 20120129
  Receipt Date: 20110928
  Transmission Date: 20120608
  Serious: No
  Sender: FDA-Public Use
  Company Number: US-ABBOTT-11P-163-0858678-00

PATIENT

DRUGS (1)
  1. HUMIRA [Suspect]
     Indication: RHEUMATOID ARTHRITIS
     Route: 058

REACTIONS (5)
  - IRRITABLE BOWEL SYNDROME [None]
  - SEASONAL ALLERGY [None]
  - DIARRHOEA [None]
  - SINUS DISORDER [None]
  - ENTEROBACTER INFECTION [None]
